FAERS Safety Report 10678257 (Version 1)
Quarter: 2014Q4

REPORT INFORMATION
  Report Type: Spontaneous
  Country: IT (occurrence: IT)
  Receive Date: 20141229
  Receipt Date: 20141229
  Transmission Date: 20150529
  Serious: Yes (Hospitalization)
  Sender: FDA-Public Use
  Company Number: PHHY2014IT168435

PATIENT
  Age: 24 Year
  Sex: Male

DRUGS (8)
  1. CARDICOR [Suspect]
     Active Substance: BISOPROLOL
     Indication: INTENTIONAL SELF-INJURY
     Dosage: 14 DF, ONCE/SINGLE
     Route: 048
     Dates: start: 20141013, end: 20141013
  2. PLAUNAC [Suspect]
     Active Substance: OLMESARTAN MEDOXOMIL
     Indication: INTENTIONAL SELF-INJURY
     Dosage: 28 DF, ONCE/SINGLE
     Route: 048
     Dates: start: 20141013, end: 20141013
  3. DEPAKENE [Concomitant]
     Active Substance: VALPROIC ACID
     Indication: PRODUCT USED FOR UNKNOWN INDICATION
     Route: 065
  4. TOLEP [Suspect]
     Active Substance: OXCARBAZEPINE
     Indication: INTENTIONAL SELF-INJURY
     Dosage: 30 MG TOTALLY
     Route: 048
     Dates: start: 20141013, end: 20141013
  5. VENLAFAXINE [Concomitant]
     Active Substance: VENLAFAXINE HYDROCHLORIDE
     Indication: PRODUCT USED FOR UNKNOWN INDICATION
     Route: 065
  6. OLANZAPINE. [Concomitant]
     Active Substance: OLANZAPINE
     Indication: PRODUCT USED FOR UNKNOWN INDICATION
     Route: 065
  7. PAROXETINE [Concomitant]
     Active Substance: PAROXETINE\PAROXETINE HYDROCHLORIDE
     Indication: PRODUCT USED FOR UNKNOWN INDICATION
     Route: 065
  8. TRITTICO [Concomitant]
     Active Substance: TRAZODONE HYDROCHLORIDE
     Indication: PRODUCT USED FOR UNKNOWN INDICATION
     Route: 065

REACTIONS (1)
  - Sopor [Recovering/Resolving]

NARRATIVE: CASE EVENT DATE: 20141013
